FAERS Safety Report 5985989-1 (Version None)
Quarter: 2008Q4

REPORT INFORMATION
  Report Type: 
  Country: None (occurrence: None)
  Receive Date: 20081209
  Receipt Date: 20081201
  Transmission Date: 20090506
  Serious: Yes (Other)
  Sender: FDA-Public Use
  Company Number: US-JNJFOC-20081200836

PATIENT
  Sex: Female
  Weight: 56.7 kg

DRUGS (3)
  1. DURAGESIC-100 [Suspect]
     Indication: PAIN
     Dosage: DOSE = 100UG/HR + 50UG/HR
     Route: 062
  2. ROXICODONE [Concomitant]
     Indication: PAIN
     Dosage: AS NEEDED
     Route: 048
  3. XANAX [Concomitant]
     Indication: ANXIETY
     Route: 048

REACTIONS (5)
  - INCORRECT DRUG ADMINISTRATION DURATION [None]
  - MENOPAUSE [None]
  - NIGHT SWEATS [None]
  - PYREXIA [None]
  - STAPHYLOCOCCAL INFECTION [None]
